FAERS Safety Report 9232740 (Version 1)
Quarter: 2013Q2

REPORT INFORMATION
  Report Type: Spontaneous
  Country: US (occurrence: US)
  Receive Date: 20130416
  Receipt Date: 20130416
  Transmission Date: 20140414
  Serious: Yes (Hospitalization)
  Sender: FDA-Public Use
  Company Number: US-MERCK-1304USA005744

PATIENT
  Age: 25 Year
  Sex: Male

DRUGS (4)
  1. SAPHRIS [Suspect]
     Indication: SCHIZOPHRENIA
     Dosage: 5 MG, BID
     Route: 060
  2. SAPHRIS [Suspect]
     Dosage: 10 MG, BID
     Route: 060
  3. CELEXA [Concomitant]
  4. DEPAKOTE [Concomitant]

REACTIONS (5)
  - Abnormal behaviour [Recovering/Resolving]
  - Hallucination, auditory [Recovering/Resolving]
  - Schizophrenia, disorganised type [Recovering/Resolving]
  - Crying [Recovering/Resolving]
  - Abnormal behaviour [Recovering/Resolving]
